FAERS Safety Report 21926692 (Version 3)
Quarter: 2023Q1

REPORT INFORMATION
  Report Type: Spontaneous
  Country: US (occurrence: US)
  Receive Date: 20230130
  Receipt Date: 20230314
  Transmission Date: 20230418
  Serious: Yes (Hospitalization)
  Sender: FDA-Public Use
  Company Number: US-PHARMING-PHAUS2023000080

PATIENT

DRUGS (4)
  1. RUCONEST [Suspect]
     Active Substance: HUMAN C1-ESTERASE INHIBITOR
     Indication: Hereditary angioedema
     Dosage: 4200 IU, EVERY THREE DAYS
     Route: 042
     Dates: start: 201902
  2. RUCONEST [Suspect]
     Active Substance: HUMAN C1-ESTERASE INHIBITOR
     Dosage: 4200 IU, EVERY THREE DAYS
     Route: 042
     Dates: start: 20180814
  3. RUCONEST [Suspect]
     Active Substance: HUMAN C1-ESTERASE INHIBITOR
     Dosage: 4200 IU, EVERY THREE DAYS
     Route: 042
     Dates: start: 20180813
  4. ICATIBANT [Concomitant]
     Active Substance: ICATIBANT ACETATE
     Indication: Hereditary angioedema

REACTIONS (7)
  - Complication associated with device [Unknown]
  - Weight fluctuation [Unknown]
  - Condition aggravated [Unknown]
  - Device issue [Unknown]
  - Vascular access site complication [Unknown]
  - Product dose omission issue [Unknown]
  - Intentional product use issue [Unknown]

NARRATIVE: CASE EVENT DATE: 20230119
